FAERS Safety Report 23427567 (Version 1)
Quarter: 2024Q1

REPORT INFORMATION
  Report Type: Spontaneous
  Country: US (occurrence: None)
  Receive Date: 20240119
  Receipt Date: 20240119
  Transmission Date: 20240410
  Serious: Yes (Other)
  Sender: FDA-Public Use
  Company Number: None

PATIENT
  Age: 34 Year
  Sex: Female
  Weight: 87.75 kg

DRUGS (10)
  1. ZEPBOUND [Suspect]
     Active Substance: TIRZEPATIDE
     Indication: Insulin resistance
     Dosage: OTHER QUANTITY : 4 INJECTION(S);?OTHER FREQUENCY : 1X WEEKLY;?
     Route: 058
     Dates: start: 20240114, end: 20240115
  2. ZEPBOUND [Suspect]
     Active Substance: TIRZEPATIDE
     Indication: Weight abnormal
  3. ROPINIROLE [Concomitant]
     Active Substance: ROPINIROLE
  4. VALACYCLOVIR [Concomitant]
     Active Substance: VALACYCLOVIR HYDROCHLORIDE
  5. METFORMIN [Concomitant]
     Active Substance: METFORMIN HYDROCHLORIDE
  6. TOPIRAMATE [Concomitant]
     Active Substance: TOPIRAMATE
  7. SERTRALINE [Concomitant]
     Active Substance: SERTRALINE HYDROCHLORIDE
  8. FAMOTIDINE [Concomitant]
     Active Substance: FAMOTIDINE
  9. norethindrone-ethinyl estradiol [Concomitant]
  10. MAGNESIUM [Concomitant]
     Active Substance: MAGNESIUM

REACTIONS (8)
  - Nausea [None]
  - Somnolence [None]
  - Headache [None]
  - Pain in jaw [None]
  - Parosmia [None]
  - Vomiting [None]
  - Gastritis [None]
  - Feeling hot [None]

NARRATIVE: CASE EVENT DATE: 20240115
